FAERS Safety Report 4846541-4 (Version None)
Quarter: 2005Q4

REPORT INFORMATION
  Report Type: 
  Country: None (occurrence: None)
  Receive Date: 20051202
  Receipt Date: 20051118
  Transmission Date: 20060501
  Serious: Yes (Hospitalization)
  Sender: FDA-Public Use
  Company Number: CERZ-10777

PATIENT
  Age: 59 Year
  Sex: Male
  Weight: 86.3 kg

DRUGS (2)
  1. CEREZYME [Suspect]
     Indication: GAUCHER'S DISEASE
     Dosage: 1200 UNITS Q2WKS IV
     Route: 042
     Dates: start: 19970501
  2. MULTI-VITAMIN [Concomitant]

REACTIONS (2)
  - DRUG DOSE OMISSION [None]
  - OSTEONECROSIS [None]
